FAERS Safety Report 7606928-3 (Version None)
Quarter: 2011Q3

REPORT INFORMATION
  Report Type: 
  Country: None (occurrence: None)
  Receive Date: 20110713
  Receipt Date: 20110628
  Transmission Date: 20111222
  Serious: Yes (Death)
  Sender: FDA-Public Use
  Company Number: US-PFIZER INC-2008153447

PATIENT
  Age: 42 Year
  Sex: Female

DRUGS (6)
  1. SERTRALINE HYDROCHLORIDE [Suspect]
     Dosage: UNK
     Route: 048
  2. ALPRAZOLAM [Suspect]
     Dosage: UNK
     Route: 048
  3. LISINOPRIL [Suspect]
     Dosage: UNK
     Route: 048
  4. AMITRIPTYLINE HCL [Suspect]
     Dosage: UNK
     Route: 048
  5. ACETAMINOPHEN [Suspect]
     Dosage: UNK
     Route: 048
  6. TRAMADOL HCL [Suspect]
     Dosage: UNK
     Route: 048

REACTIONS (1)
  - COMPLETED SUICIDE [None]
